FAERS Safety Report 6003342-1 (Version None)
Quarter: 2008Q4

REPORT INFORMATION
  Report Type: 
  Country: None (occurrence: None)
  Receive Date: 20081216
  Receipt Date: 20081204
  Transmission Date: 20090506
  Serious: Yes (Death, Hospitalization)
  Sender: FDA-Public Use
  Company Number: FR-AVENTIS-200814275FR

PATIENT
  Age: 68 Year
  Sex: Male

DRUGS (8)
  1. LOVENOX [Suspect]
     Indication: ANGIOPLASTY
     Route: 042
     Dates: start: 20050512, end: 20050512
  2. LOVENOX [Suspect]
     Indication: CORONARY ARTERIAL STENT INSERTION
     Route: 042
     Dates: start: 20050512, end: 20050512
  3. INTEGRILIN [Suspect]
     Indication: ANGIOPLASTY
     Route: 042
     Dates: start: 20050512, end: 20050512
  4. INTEGRILIN [Suspect]
     Indication: CORONARY ARTERIAL STENT INSERTION
     Route: 042
     Dates: start: 20050512, end: 20050512
  5. KARDEGIC                           /00002703/ [Suspect]
     Indication: ANGIOPLASTY
     Route: 048
     Dates: start: 20050418, end: 20050512
  6. KARDEGIC                           /00002703/ [Suspect]
     Indication: CORONARY ARTERIAL STENT INSERTION
     Route: 048
     Dates: start: 20050418, end: 20050512
  7. PLAVIX [Suspect]
     Indication: ANGIOPLASTY
     Route: 048
     Dates: start: 20050418, end: 20050512
  8. PLAVIX [Suspect]
     Indication: CORONARY ARTERIAL STENT INSERTION
     Route: 048
     Dates: start: 20050418, end: 20050512

REACTIONS (2)
  - EXTRADURAL HAEMATOMA [None]
  - QUADRIPLEGIA [None]
